FAERS Safety Report 22165742 (Version 1)
Quarter: 2023Q1

REPORT INFORMATION
  Report Type: Spontaneous
  Country: US (occurrence: None)
  Receive Date: 20230331
  Receipt Date: 20230331
  Transmission Date: 20230417
  Serious: No
  Sender: FDA-Public Use
  Company Number: None

PATIENT
  Age: 54 Year
  Sex: Female
  Weight: 100.24 kg

DRUGS (20)
  1. CAPECITABINE [Suspect]
     Active Substance: CAPECITABINE
     Indication: Rectal cancer
     Dosage: FREQUENCY : TWICE A DAY;?
     Route: 048
  2. CAPECITABINE [Suspect]
     Active Substance: CAPECITABINE
     Indication: Rectal cancer
     Dosage: FREQUENCY : TWICE A DAY;?
     Route: 048
  3. ACETAMINOPHEN [Concomitant]
  4. AMPHETAMINE-DEXTROMPHETAMINE [Concomitant]
  5. ARMODAFINIL [Concomitant]
  6. ELIQUIS [Concomitant]
  7. ERYTHROMYCIN [Concomitant]
  8. FAMOTIDINE [Concomitant]
  9. FLAGYL [Concomitant]
  10. NORCO [Concomitant]
  11. IBUPROFEN [Concomitant]
  12. LIDOCAINE [Concomitant]
  13. MELATONIN [Concomitant]
     Active Substance: MELATONIN
  14. NEOMYCIN [Concomitant]
  15. ONDANSETRON [Concomitant]
  16. ORAMAGIC PLUS [Concomitant]
  17. PEG 3350 [Concomitant]
  18. SERTRALINE [Concomitant]
  19. TRAMADOL [Concomitant]
  20. VITAMIN D3 [Concomitant]

REACTIONS (1)
  - Jugular vein thrombosis [None]
